FAERS Safety Report 7440944-X (Version None)
Quarter: 2011Q2

REPORT INFORMATION
  Report Type: 
  Country: None (occurrence: None)
  Receive Date: 20110427
  Receipt Date: 20110414
  Transmission Date: 20111010
  Serious: Yes (Other)
  Sender: FDA-Public Use
  Company Number: PHHY2010NL85491

PATIENT
  Sex: Female
  Weight: 36 kg

DRUGS (8)
  1. EXELON [Suspect]
     Indication: HALLUCINATION
     Dosage: 9.5 MG PER DAY
     Route: 062
  2. EXELON [Suspect]
     Dosage: 4.6 MG, PER DAY
     Route: 062
     Dates: start: 20101220, end: 20110301
  3. OXAZEPAM [Concomitant]
     Dosage: 0.5 DF, UNK
     Route: 048
  4. EXELON [Suspect]
     Indication: DEMENTIA
     Dosage: 4.6 MG,
     Route: 062
     Dates: start: 20090101
  5. ASCAL [Concomitant]
     Dosage: 80 MG, 1DD1
     Route: 048
  6. MULTI-VITAMINS [Concomitant]
  7. CRANBERRY BLADDER CAPSULE [Concomitant]
     Dosage: 2DD1
     Route: 048
  8. LACTULOSE [Concomitant]

REACTIONS (4)
  - WEIGHT DECREASED [None]
  - RESTLESSNESS [None]
  - DELIRIUM [None]
  - HALLUCINATION [None]
